FAERS Safety Report 5601499-5 (Version None)
Quarter: 2008Q1

REPORT INFORMATION
  Report Type: 
  Country: None (occurrence: None)
  Receive Date: 20080124
  Receipt Date: 20070307
  Transmission Date: 20080703
  Serious: No
  Sender: FDA-Public Use
  Company Number: US-BAYER-200710730BCC

PATIENT
  Age: 70 Year
  Sex: Female
  Weight: 50 kg

DRUGS (4)
  1. ALEVE COLD AND SINUS [Suspect]
     Indication: SINUS HEADACHE
     Dosage: TOTAL DAILY DOSE: 220 MG  UNIT DOSE: 220 MG
     Route: 048
     Dates: start: 20070306
  2. DYAZIDE [Concomitant]
  3. BONIVA [Concomitant]
  4. TRAZODONE HCL [Concomitant]

REACTIONS (6)
  - ABNORMAL DREAMS [None]
  - NIGHT SWEATS [None]
  - PALPITATIONS [None]
  - RESTLESSNESS [None]
  - SINUS HEADACHE [None]
  - SLEEP DISORDER [None]
